FAERS Safety Report 26059911 (Version 1)
Quarter: 2025Q4

REPORT INFORMATION
  Report Type: Spontaneous
  Country: US (occurrence: None)
  Receive Date: 20251118
  Receipt Date: 20251118
  Transmission Date: 20260118
  Serious: Yes (Hospitalization)
  Sender: FDA-CTU
  Company Number: None

PATIENT
  Sex: Female

DRUGS (11)
  1. ORENCIA [Suspect]
     Active Substance: ABATACEPT
     Indication: Rheumatoid arthritis
     Dosage: INJECT 1 PEN (125 MG) UNDER THE SKIN (SUBCUTANEOUS INJECTION) ONCE A WEEK
     Route: 058
     Dates: start: 20220706
  2. ALBUTEROL SULFATE [Concomitant]
     Active Substance: ALBUTEROL SULFATE
  3. AMLODIPINE [Concomitant]
     Active Substance: AMLODIPINE BESYLATE
  4. AZELASTINE SPR [Concomitant]
  5. CRESTOR [Concomitant]
     Active Substance: ROSUVASTATIN CALCIUM
  6. DOXYCYCLINE POW HYCLATE [Concomitant]
  7. GABAPENTIN [Concomitant]
     Active Substance: GABAPENTIN
  8. NITROGLYCERI SUB [Concomitant]
  9. PLAQUENIL [Concomitant]
     Active Substance: HYDROXYCHLOROQUINE SULFATE
  10. PLAVIX [Concomitant]
     Active Substance: CLOPIDOGREL BISULFATE
  11. PREDNISONE [Concomitant]
     Active Substance: PREDNISONE

REACTIONS (3)
  - Loss of personal independence in daily activities [None]
  - Pain [None]
  - Intentional dose omission [None]
